FAERS Safety Report 4790774-2 (Version None)
Quarter: 2005Q4

REPORT INFORMATION
  Report Type: 
  Country: None (occurrence: None)
  Receive Date: 20051006
  Receipt Date: 20050627
  Transmission Date: 20060501
  Serious: Yes (Hospitalization)
  Sender: FDA-Public Use
  Company Number: US-MERCK-0506USA03993

PATIENT
  Age: 54 Year
  Sex: Female
  Weight: 132 kg

DRUGS (8)
  1. ADVIL [Concomitant]
     Indication: PAIN
     Route: 065
     Dates: start: 20000101
  2. MOTRIN [Concomitant]
     Indication: PAIN
     Route: 065
     Dates: start: 19980101, end: 20040101
  3. GINSENG [Concomitant]
     Indication: ROUTINE HEALTH MAINTENANCE
     Route: 065
     Dates: start: 19630101
  4. VIOXX [Suspect]
     Indication: ARTHRITIS
     Route: 048
     Dates: start: 20001010, end: 20030911
  5. FUROSEMIDE [Concomitant]
     Route: 065
  6. LEVOTHYROXINE SODIUM [Concomitant]
     Indication: THYROID DISORDER
     Route: 065
     Dates: start: 20010101
  7. ASPIRIN [Concomitant]
     Indication: PROPHYLAXIS
     Route: 065
     Dates: start: 19910101
  8. ADVIL [Concomitant]
     Indication: HEADACHE
     Route: 065
     Dates: start: 20000101

REACTIONS (4)
  - CEREBROVASCULAR ACCIDENT [None]
  - HYPOKALAEMIA [None]
  - RHEUMATOID ARTHRITIS [None]
  - TENDON INJURY [None]
